FAERS Safety Report 23125456 (Version 1)
Quarter: 2023Q4

REPORT INFORMATION
  Report Type: Spontaneous
  Country: CN (occurrence: CN)
  Receive Date: 20231030
  Receipt Date: 20231030
  Transmission Date: 20240109
  Serious: Yes (Hospitalization)
  Sender: FDA-Public Use
  Company Number: CN-002147023-NVSC2023CN230774

PATIENT
  Age: 19 Year
  Sex: Male
  Weight: 64 kg

DRUGS (3)
  1. TRILEPTAL [Suspect]
     Active Substance: OXCARBAZEPINE
     Indication: Epilepsy
     Dosage: 0.15 MG, BID
     Route: 048
     Dates: start: 20230729
  2. TRILEPTAL [Suspect]
     Active Substance: OXCARBAZEPINE
     Dosage: 300 MG, BID (0.3 BID)
     Route: 048
     Dates: start: 20230731
  3. TRILEPTAL [Suspect]
     Active Substance: OXCARBAZEPINE
     Dosage: 150 MG, BID
     Route: 048
     Dates: start: 20230824, end: 20230828

REACTIONS (3)
  - Atrioventricular block second degree [Recovering/Resolving]
  - Sinus bradycardia [Unknown]
  - Electrocardiogram high voltage [Unknown]

NARRATIVE: CASE EVENT DATE: 20230821
